FAERS Safety Report 9657014 (Version 1)
Quarter: 2013Q4

REPORT INFORMATION
  Report Type: Spontaneous
  Country: US (occurrence: US)
  Receive Date: 20131030
  Receipt Date: 20131030
  Transmission Date: 20140711
  Serious: Yes (Other)
  Sender: FDA-Public Use
  Company Number: US-TEVA-441323USA

PATIENT
  Sex: Female

DRUGS (1)
  1. CALCITRIOL [Suspect]

REACTIONS (1)
  - Coeliac disease [Unknown]
